APPROVED DRUG PRODUCT: CLOBAZAM
Active Ingredient: CLOBAZAM
Strength: 10MG
Dosage Form/Route: TABLET;ORAL
Application: A212714 | Product #001 | TE Code: AB
Applicant: ALKEM LABORATORIES LTD
Approved: Sep 6, 2019 | RLD: No | RS: No | Type: RX